FAERS Safety Report 11398645 (Version 2)
Quarter: 2015Q3

REPORT INFORMATION
  Report Type: Spontaneous
  Country: JP (occurrence: JP)
  Receive Date: 20150820
  Receipt Date: 20150831
  Transmission Date: 20151125
  Serious: Yes (Other)
  Sender: FDA-Public Use
  Company Number: JP-ELI_LILLY_AND_COMPANY-JP201508002321

PATIENT
  Age: 4 Month
  Sex: Female
  Weight: 6 kg

DRUGS (6)
  1. JZOLOFT [Concomitant]
     Active Substance: SERTRALINE HYDROCHLORIDE
     Indication: PERSONALITY DISORDER
     Dosage: 50 MG, QD
     Route: 064
     Dates: start: 201409
  2. ZYPREXA [Suspect]
     Active Substance: OLANZAPINE
     Indication: PERSONALITY DISORDER
     Dosage: 5 MG, QD
     Route: 064
     Dates: start: 201409
  3. WYPAX [Concomitant]
     Active Substance: LORAZEPAM
     Indication: PERSONALITY DISORDER
     Dosage: 1 MG, QD
     Route: 064
     Dates: start: 201409
  4. ZYPREXA [Suspect]
     Active Substance: OLANZAPINE
     Indication: PERSONALITY DISORDER
     Dosage: 5 MG, QD
     Route: 064
     Dates: start: 201409
  5. JZOLOFT [Concomitant]
     Active Substance: SERTRALINE HYDROCHLORIDE
     Indication: PERSONALITY DISORDER
     Dosage: 50 MG, QD
     Route: 064
     Dates: start: 201409
  6. WYPAX [Concomitant]
     Active Substance: LORAZEPAM
     Indication: PERSONALITY DISORDER
     Dosage: 1 MG, QD
     Route: 064
     Dates: start: 201409

REACTIONS (2)
  - Apnoeic attack [Unknown]
  - Foetal exposure during pregnancy [Recovered/Resolved]

NARRATIVE: CASE EVENT DATE: 20150717
